FAERS Safety Report 6850946-X (Version None)
Quarter: 2010Q3

REPORT INFORMATION
  Report Type: 
  Country: None (occurrence: None)
  Receive Date: 20100716
  Receipt Date: 20071025
  Transmission Date: 20110219
  Serious: No
  Sender: FDA-Public Use
  Company Number: US-PFIZER INC-2007090655

PATIENT
  Sex: Female
  Weight: 73.2 kg

DRUGS (5)
  1. CHANTIX [Suspect]
     Indication: SMOKING CESSATION THERAPY
     Dates: start: 20071013
  2. NEXIUM [Concomitant]
  3. HYDROCHLOROTHIAZIDE [Concomitant]
  4. PRAVACHOL [Concomitant]
     Indication: BLOOD CHOLESTEROL INCREASED
  5. TOPROL-XL [Concomitant]
     Indication: HYPERTENSION

REACTIONS (3)
  - ABDOMINAL PAIN UPPER [None]
  - DYSPEPSIA [None]
  - NAUSEA [None]
